FAERS Safety Report 24241170 (Version 2)
Quarter: 2024Q4

REPORT INFORMATION
  Report Type: Spontaneous
  Country: CA (occurrence: CA)
  Receive Date: 20240823
  Receipt Date: 20241010
  Transmission Date: 20250115
  Serious: Yes (Death, Other)
  Sender: BRISTOL MYERS SQUIBB
  Company Number: CA-BRISTOL-MYERS SQUIBB COMPANY-2024-133422

PATIENT
  Age: 43 Year
  Sex: Female
  Weight: 96 kg

DRUGS (131)
  1. ORENCIA [Suspect]
     Active Substance: ABATACEPT
     Indication: Rheumatoid arthritis
     Route: 040
  2. ORENCIA [Suspect]
     Active Substance: ABATACEPT
     Indication: Rheumatoid arthritis
  3. TRIAMCINOLONE ACETONIDE [Suspect]
     Active Substance: TRIAMCINOLONE ACETONIDE
     Indication: Rheumatoid arthritis
     Route: 014
  4. ACTEMRA [Concomitant]
     Active Substance: TOCILIZUMAB
     Indication: Rheumatoid arthritis
  5. ADALIMUMAB [Concomitant]
     Active Substance: ADALIMUMAB
     Indication: Rheumatoid arthritis
     Route: 058
  6. ADALIMUMAB [Concomitant]
     Active Substance: ADALIMUMAB
     Dosage: SOLUTION SUBCUTANEOUS
  7. AIMOVIG [Concomitant]
     Active Substance: ERENUMAB-AOOE
     Indication: Migraine
  8. AIMOVIG [Concomitant]
     Active Substance: ERENUMAB-AOOE
  9. ALENDRONATE SODIUM [Concomitant]
     Active Substance: ALENDRONATE SODIUM
     Indication: Rheumatoid arthritis
     Route: 048
  10. ALENDRONATE SODIUM [Concomitant]
     Active Substance: ALENDRONATE SODIUM
     Route: 048
  11. ALENDRONIC ACID [Concomitant]
     Active Substance: ALENDRONIC ACID
     Indication: Rheumatoid arthritis
  12. APREMILAST [Concomitant]
     Active Substance: APREMILAST
     Indication: Product used for unknown indication
  13. ARAVA [Concomitant]
     Active Substance: LEFLUNOMIDE
     Indication: Rheumatoid arthritis
     Route: 048
  14. ARAVA [Concomitant]
     Active Substance: LEFLUNOMIDE
  15. ATOMOXETINE HYDROCHLORIDE [Concomitant]
     Active Substance: ATOMOXETINE HYDROCHLORIDE
     Indication: Migraine
  16. BOTULINUM TOXIN TYPE A [Concomitant]
     Active Substance: BOTULINUM TOXIN TYPE A
     Indication: Product used for unknown indication
     Dosage: POWDER FOR SOLUTION
  17. BUTRANS [Concomitant]
     Active Substance: BUPRENORPHINE
     Indication: Product used for unknown indication
     Dosage: PATCH
  18. CALCIUM ASCORBATE [Concomitant]
     Active Substance: CALCIUM ASCORBATE
     Indication: Product used for unknown indication
  19. CANDESARTAN [Concomitant]
     Active Substance: CANDESARTAN
     Indication: Migraine
     Route: 048
  20. CELEBREX [Concomitant]
     Active Substance: CELECOXIB
     Indication: Product used for unknown indication
  21. CERTOLIZUMAB PEGOL [Concomitant]
     Active Substance: CERTOLIZUMAB PEGOL
     Indication: Product used for unknown indication
  22. CETIRIZINE HYDROCHLORIDE [Concomitant]
     Active Substance: CETIRIZINE HYDROCHLORIDE
     Indication: Rheumatoid arthritis
     Route: 048
  23. CETIRIZINE HYDROCHLORIDE [Concomitant]
     Active Substance: CETIRIZINE HYDROCHLORIDE
  24. CETIRIZINE HYDROCHLORIDE [Concomitant]
     Active Substance: CETIRIZINE HYDROCHLORIDE
  25. CETIRIZINE HYDROCHLORIDE [Concomitant]
     Active Substance: CETIRIZINE HYDROCHLORIDE
  26. CETIRIZINE HYDROCHLORIDE [Concomitant]
     Active Substance: CETIRIZINE HYDROCHLORIDE
     Route: 048
  27. CHLORHEXIDINE GLUCONATE [Concomitant]
     Active Substance: CHLORHEXIDINE GLUCONATE
     Indication: Product used for unknown indication
     Route: 061
  28. CHOLECALCIFEROL [Concomitant]
     Active Substance: CHOLECALCIFEROL
     Indication: Product used for unknown indication
  29. CIMZIA [Concomitant]
     Active Substance: CERTOLIZUMAB PEGOL
     Indication: Psoriasis
  30. CIMZIA [Concomitant]
     Active Substance: CERTOLIZUMAB PEGOL
  31. CORTISONE ACETATE [Concomitant]
     Active Substance: CORTISONE ACETATE
     Indication: Rheumatoid arthritis
     Route: 061
  32. CORTISONE ACETATE [Concomitant]
     Active Substance: CORTISONE ACETATE
  33. COSENTYX [Concomitant]
     Active Substance: SECUKINUMAB
     Indication: Psoriatic arthropathy
  34. DESOXIMETASONE [Concomitant]
     Active Substance: DESOXIMETASONE
     Indication: Rheumatoid arthritis
     Route: 058
  35. DESOXIMETASONE [Concomitant]
     Active Substance: DESOXIMETASONE
     Route: 048
  36. DICLOFENAC DIETHYLAMINE [Concomitant]
     Active Substance: DICLOFENAC DIETHYLAMINE
     Indication: Product used for unknown indication
  37. DICLOFENAC POTASSIUM [Concomitant]
     Active Substance: DICLOFENAC POTASSIUM
     Indication: Product used for unknown indication
  38. DICLOFENAC SODIUM [Concomitant]
     Active Substance: DICLOFENAC SODIUM
     Indication: Product used for unknown indication
     Route: 058
  39. DOMPERIDONE MALEATE [Concomitant]
     Active Substance: DOMPERIDONE MALEATE
     Indication: Product used for unknown indication
  40. ENBREL [Concomitant]
     Active Substance: ETANERCEPT
     Indication: Rheumatoid arthritis
     Route: 058
  41. ERELZI [Concomitant]
     Active Substance: ETANERCEPT-SZZS
     Indication: Rheumatoid arthritis
     Route: 058
  42. ERELZI [Concomitant]
     Active Substance: ETANERCEPT-SZZS
  43. FLUMETHASONE [Concomitant]
     Active Substance: FLUMETHASONE
     Indication: Product used for unknown indication
  44. FLUMETHASONE PIVALATE [Concomitant]
     Active Substance: FLUMETHASONE PIVALATE
     Indication: Product used for unknown indication
     Route: 058
  45. FOLIC ACID [Concomitant]
     Active Substance: FOLIC ACID
     Indication: Rheumatoid arthritis
  46. FOLIC ACID [Concomitant]
     Active Substance: FOLIC ACID
  47. FOLIC ACID [Concomitant]
     Active Substance: FOLIC ACID
     Route: 048
  48. GOLD [Concomitant]
     Active Substance: GOLD
     Indication: Product used for unknown indication
  49. GOLD SODIUM THIOMALATE [Concomitant]
     Active Substance: GOLD SODIUM THIOMALATE
     Indication: Product used for unknown indication
  50. GOLIMUMAB [Concomitant]
     Active Substance: GOLIMUMAB
     Indication: Rheumatoid arthritis
  51. GOLIMUMAB [Concomitant]
     Active Substance: GOLIMUMAB
     Indication: Prostatic specific antigen
  52. HUMIRA [Concomitant]
     Active Substance: ADALIMUMAB
     Indication: Rheumatoid arthritis
     Dosage: SOLUTION SUBCUTANEOUS
  53. HUMIRA [Concomitant]
     Active Substance: ADALIMUMAB
  54. HYDROCORTISONE BUTYRATE [Concomitant]
     Active Substance: HYDROCORTISONE BUTYRATE
     Indication: Rheumatoid arthritis
  55. HYDROXYCHLOROQUINE [Concomitant]
     Active Substance: HYDROXYCHLOROQUINE
     Indication: Rheumatoid arthritis
  56. HYDROXYCHLOROQUINE [Concomitant]
     Active Substance: HYDROXYCHLOROQUINE
  57. HYDROXYCHLOROQUINE [Concomitant]
     Active Substance: HYDROXYCHLOROQUINE
     Route: 048
  58. HYDROXYCHLOROQUINE [Concomitant]
     Active Substance: HYDROXYCHLOROQUINE
  59. HYDROXYCHLOROQUINE [Concomitant]
     Active Substance: HYDROXYCHLOROQUINE
  60. HYDROXYCHLOROQUINE SULFATE [Concomitant]
     Active Substance: HYDROXYCHLOROQUINE SULFATE
     Indication: Rheumatoid arthritis
     Route: 048
  61. HYDROXYCHLOROQUINE SULFATE [Concomitant]
     Active Substance: HYDROXYCHLOROQUINE SULFATE
     Route: 048
  62. INFLIXIMAB [Concomitant]
     Active Substance: INFLIXIMAB
     Indication: Rheumatoid arthritis
  63. LAMICTAL [Concomitant]
     Active Substance: LAMOTRIGINE
     Indication: Product used for unknown indication
     Route: 048
  64. LEFLUNOMIDE [Concomitant]
     Active Substance: LEFLUNOMIDE
     Indication: Rheumatoid arthritis
  65. LEFLUNOMIDE [Concomitant]
     Active Substance: LEFLUNOMIDE
  66. LEFLUNOMIDE [Concomitant]
     Active Substance: LEFLUNOMIDE
     Route: 048
  67. LEFLUNOMIDE [Concomitant]
     Active Substance: LEFLUNOMIDE
  68. LEFLUNOMIDE [Concomitant]
     Active Substance: LEFLUNOMIDE
  69. MAGNESIUM CITRATE [Concomitant]
     Active Substance: MAGNESIUM CITRATE
     Indication: Product used for unknown indication
  70. METHOTREXATE [Concomitant]
     Active Substance: METHOTREXATE
     Indication: Rheumatoid arthritis
     Route: 048
  71. METHOTREXATE [Concomitant]
     Active Substance: METHOTREXATE
     Route: 048
  72. METHYLPREDNISOLONE SODIUM SUCCINATE [Concomitant]
     Active Substance: METHYLPREDNISOLONE SODIUM SUCCINATE
     Indication: Product used for unknown indication
  73. MYRBETRIQ [Concomitant]
     Active Substance: MIRABEGRON
     Indication: Product used for unknown indication
     Dosage: TABLET (EXTENDED- RELEASE)
  74. NAPROXEN [Concomitant]
     Active Substance: NAPROXEN
     Indication: Product used for unknown indication
  75. NAPROXEN SODIUM [Concomitant]
     Active Substance: NAPROXEN SODIUM
     Indication: Rheumatoid arthritis
  76. NUCALA [Concomitant]
     Active Substance: MEPOLIZUMAB
     Indication: Product used for unknown indication
  77. OXYCODONE [Concomitant]
     Active Substance: OXYCODONE
     Indication: Product used for unknown indication
  78. OXYCODONE TEREPHTHALATE [Concomitant]
     Active Substance: OXYCODONE TEREPHTHALATE
     Indication: Product used for unknown indication
  79. PHENYLEPHRINE HYDROCHLORIDE [Concomitant]
     Active Substance: PHENYLEPHRINE HYDROCHLORIDE
     Indication: Rheumatoid arthritis
  80. PHTHALYLSULFATHIAZOLE [Concomitant]
     Active Substance: PHTHALYLSULFATHIAZOLE
     Indication: Rheumatoid arthritis
     Route: 048
  81. PHTHALYLSULFATHIAZOLE [Concomitant]
     Active Substance: PHTHALYLSULFATHIAZOLE
  82. PREDNISONE [Concomitant]
     Active Substance: PREDNISONE
     Indication: Rheumatoid arthritis
  83. PREDNISONE [Concomitant]
     Active Substance: PREDNISONE
     Route: 048
  84. PSEUDOEPHEDRINE HYDROCHLORIDE [Concomitant]
     Active Substance: PSEUDOEPHEDRINE HYDROCHLORIDE
     Indication: Rheumatoid arthritis
  85. PSEUDOEPHEDRINE HYDROCHLORIDE [Concomitant]
     Active Substance: PSEUDOEPHEDRINE HYDROCHLORIDE
  86. PSEUDOEPHEDRINE HYDROCHLORIDE [Concomitant]
     Active Substance: PSEUDOEPHEDRINE HYDROCHLORIDE
  87. RANITIDINE [Concomitant]
     Active Substance: RANITIDINE
     Indication: Rheumatoid arthritis
  88. CETIRIZINE HYDROCHLORIDE\PSEUDOEPHEDRINE HYDROCHLORIDE [Concomitant]
     Active Substance: CETIRIZINE HYDROCHLORIDE\PSEUDOEPHEDRINE HYDROCHLORIDE
     Indication: Product used for unknown indication
     Dosage: TABLET (EXTENDED- RELEASE)
  89. REMICADE [Concomitant]
     Active Substance: INFLIXIMAB
     Indication: Rheumatoid arthritis
     Dosage: POWDER FOR SOLUTION INTRAVENOUS
     Route: 040
  90. RITUXIMAB [Concomitant]
     Active Substance: RITUXIMAB
     Indication: Rheumatoid arthritis
  91. RITUXIMAB [Concomitant]
     Active Substance: RITUXIMAB
     Route: 040
  92. DIETARY SUPPLEMENT\HERBALS [Concomitant]
     Active Substance: DIETARY SUPPLEMENT\HERBALS
     Indication: Product used for unknown indication
  93. SIMPONI [Concomitant]
     Active Substance: GOLIMUMAB
     Indication: Rheumatoid arthritis
  94. SIMPONI [Concomitant]
     Active Substance: GOLIMUMAB
     Dosage: SOLUTION SUBCUTANEOUS
     Route: 058
  95. GOLD SODIUM THIOMALATE [Concomitant]
     Active Substance: GOLD SODIUM THIOMALATE
     Indication: Product used for unknown indication
  96. SULFASALAZINE [Concomitant]
     Active Substance: SULFASALAZINE
     Indication: Rheumatoid arthritis
     Route: 048
  97. SULFASALAZINE [Concomitant]
     Active Substance: SULFASALAZINE
     Route: 048
  98. SULFASALAZINE [Concomitant]
     Active Substance: SULFASALAZINE
     Route: 048
  99. SULFASALAZINE [Concomitant]
     Active Substance: SULFASALAZINE
     Route: 048
  100. SULFASALAZINE [Concomitant]
     Active Substance: SULFASALAZINE
     Route: 048
  101. SULFASALAZINE [Concomitant]
     Active Substance: SULFASALAZINE
     Route: 058
  102. SULFASALAZINE [Concomitant]
     Active Substance: SULFASALAZINE
     Route: 048
  103. TOCILIZUMAB [Concomitant]
     Active Substance: TOCILIZUMAB
     Indication: Rheumatoid arthritis
     Route: 040
  104. TOFACITINIB [Concomitant]
     Active Substance: TOFACITINIB
     Indication: Rheumatoid arthritis
  105. TOPIRAMATE [Concomitant]
     Active Substance: TOPIRAMATE
     Indication: Migraine
  106. TOPIRAMATE [Concomitant]
     Active Substance: TOPIRAMATE
  107. TOPIRAMATE [Concomitant]
     Active Substance: TOPIRAMATE
  108. TOPIRAMATE [Concomitant]
     Active Substance: TOPIRAMATE
  109. TRAMADOL HYDROCHLORIDE [Concomitant]
     Active Substance: TRAMADOL HYDROCHLORIDE
     Indication: Product used for unknown indication
  110. XELJANZ [Concomitant]
     Active Substance: TOFACITINIB CITRATE
     Indication: Rheumatoid arthritis
  111. XELJANZ [Concomitant]
     Active Substance: TOFACITINIB CITRATE
  112. ACETAMINOPHEN AND CODEINE [Concomitant]
     Active Substance: ACETAMINOPHEN\CODEINE PHOSPHATE
     Indication: Product used for unknown indication
  113. ACETAMINOPHEN\TRAMADOL HYDROCHLORIDE [Concomitant]
     Active Substance: ACETAMINOPHEN\TRAMADOL HYDROCHLORIDE
     Indication: Product used for unknown indication
  114. CALCIUM [Concomitant]
     Active Substance: CALCIUM
     Indication: Product used for unknown indication
  115. CYANOCOBALAMIN [Concomitant]
     Active Substance: CYANOCOBALAMIN
     Indication: Product used for unknown indication
  116. DOCOSAHEXAENOIC ACID ETHYL ESTER;EICOSAPENTAENOIC ACID ETHYL ESTER [Concomitant]
     Indication: Product used for unknown indication
  117. FOSAMAX [Concomitant]
     Active Substance: ALENDRONATE SODIUM
     Indication: Product used for unknown indication
  118. GLUCOSAMINE [Concomitant]
     Active Substance: GLUCOSAMINE
     Indication: Product used for unknown indication
  119. IBUPROFEN [Concomitant]
     Active Substance: IBUPROFEN
     Indication: Product used for unknown indication
  120. LANSOPRAZOLE [Concomitant]
     Active Substance: LANSOPRAZOLE
     Indication: Product used for unknown indication
     Dosage: DELAYED RELEASE
  121. LISINOPRIL [Concomitant]
     Active Substance: LISINOPRIL
     Indication: Product used for unknown indication
  122. LORAZEPAM [Concomitant]
     Active Substance: LORAZEPAM
  123. METFORMIN HYDROCHLORIDE [Concomitant]
     Active Substance: METFORMIN HYDROCHLORIDE
     Indication: Migraine
  124. QUETIAPINE FUMARATE [Concomitant]
     Active Substance: QUETIAPINE FUMARATE
     Indication: Product used for unknown indication
  125. RAMIPRIL [Concomitant]
     Active Substance: RAMIPRIL
     Indication: Rheumatoid arthritis
     Route: 016
  126. RANITIDINE HYDROCHLORIDE [Concomitant]
     Active Substance: RANITIDINE HYDROCHLORIDE
     Indication: Rheumatoid arthritis
  127. SULFASALAZINE [Concomitant]
     Active Substance: SULFASALAZINE
     Indication: Product used for unknown indication
  128. SECUKINUMAB [Concomitant]
     Active Substance: SECUKINUMAB
     Indication: Product used for unknown indication
  129. TOFACITINIB CITRATE [Concomitant]
     Active Substance: TOFACITINIB CITRATE
     Indication: Rheumatoid arthritis
  130. TOPAMAX [Concomitant]
     Active Substance: TOPIRAMATE
     Indication: Migraine
  131. USTEKINUMAB [Concomitant]
     Active Substance: USTEKINUMAB
     Indication: Product used for unknown indication
     Route: 058

REACTIONS (1)
  - Death [Fatal]
